FAERS Safety Report 4603581-8 (Version None)
Quarter: 2005Q1

REPORT INFORMATION
  Report Type: 
  Country: None (occurrence: None)
  Receive Date: 20050308
  Receipt Date: 20050228
  Transmission Date: 20050727
  Serious: Yes (Hospitalization, Other)
  Sender: FDA-Public Use
  Company Number: 200409195

PATIENT
  Age: 74 Year
  Sex: Male

DRUGS (12)
  1. STREPTASE [Suspect]
     Indication: MYOCARDIAL INFARCTION
     Dosage: 1.5 MIU DAILY; IV
     Route: 042
     Dates: start: 20041102, end: 20041102
  2. ASPIRIN [Suspect]
     Indication: MYOCARDIAL INFARCTION
     Dosage: 250 MG DAILY PO
     Route: 048
     Dates: start: 20041102, end: 20041102
  3. ENOXAPARIN SODIUM [Suspect]
     Indication: MYOCARDIAL INFARCTION
     Dosage: IV
     Route: 042
     Dates: start: 20041102, end: 20041103
  4. METOPROLOL [Concomitant]
  5. MORPHINE [Concomitant]
  6. METOCLOPRAMIDE [Concomitant]
  7. NITROGLYCERIN [Concomitant]
  8. INSULIN [Concomitant]
  9. FUROSEMIDE [Concomitant]
  10. CARVEDILOL [Concomitant]
  11. PROTAMINE SULFATE [Concomitant]
  12. FRESH FROZEN PLASMA [Concomitant]

REACTIONS (8)
  - BLOOD PRESSURE DECREASED [None]
  - CATHETER RELATED COMPLICATION [None]
  - CHOLECYSTITIS ACUTE [None]
  - IATROGENIC INJURY [None]
  - PULMONARY OEDEMA [None]
  - PYREXIA [None]
  - URETHRAL HAEMORRHAGE [None]
  - VENTRICULAR TACHYCARDIA [None]
